FAERS Safety Report 9707034 (Version 1)
Quarter: 2013Q4

REPORT INFORMATION
  Report Type: Spontaneous
  Country: US (occurrence: US)
  Receive Date: 20131125
  Receipt Date: 20131125
  Transmission Date: 20140711
  Serious: Yes (Hospitalization, Other)
  Sender: FDA-Public Use
  Company Number: US-PFIZER INC-2013335999

PATIENT
  Age: 57 Year
  Sex: Male
  Weight: 101 kg

DRUGS (9)
  1. NEURONTIN [Suspect]
     Indication: NERVOUS SYSTEM DISORDER
     Dosage: 300 MG, 2X/DAY
     Dates: start: 2000
  2. NEURONTIN [Suspect]
     Indication: PAIN IN EXTREMITY
  3. TRAZODONE [Concomitant]
     Dosage: 50 MG, 2X/DAY
  4. FUROSEMIDE [Concomitant]
     Dosage: 20 MG, DAILY
  5. HYDRALAZINE [Concomitant]
     Dosage: 25 MG, 2X/DAY
  6. METOPROLOL [Concomitant]
     Dosage: 50 MG, DAILY
  7. PAROXETINE [Concomitant]
     Dosage: 40 MG, DAILY
  8. PANTOPRAZOLE [Concomitant]
     Dosage: 40 MG, DAILY
  9. ATENOLOL [Concomitant]
     Dosage: 50 MG, 2X/DAY

REACTIONS (4)
  - Off label use [Unknown]
  - Cerebrovascular accident [Unknown]
  - Pneumonia [Unknown]
  - Gait disturbance [Unknown]
